FAERS Safety Report 4448169-7 (Version None)
Quarter: 2004Q3

REPORT INFORMATION
  Report Type: 
  Country: None (occurrence: None)
  Receive Date: 20040813
  Receipt Date: 20040514
  Transmission Date: 20050211
  Serious: Yes (Other)
  Sender: FDA-Public Use
  Company Number: S04-USA-02061-01

PATIENT
  Age: 77 Year
  Sex: Male
  Weight: 83.4619 kg

DRUGS (10)
  1. NAMENDA [Suspect]
     Indication: DEMENTIA ALZHEIMER'S TYPE
     Dosage: 10 MG BID PO
     Route: 048
     Dates: start: 20040121, end: 20040226
  2. NAMENDA [Suspect]
     Indication: DEMENTIA ALZHEIMER'S TYPE
     Dates: end: 20040120
  3. TOPROL-XL [Concomitant]
  4. ENALAPRIL [Concomitant]
  5. FUROSEMIDE [Concomitant]
  6. HYDRALAZINE HCL [Concomitant]
  7. DOXAZOSIN [Concomitant]
  8. COUMADIN [Concomitant]
  9. ARICEPT [Concomitant]
  10. AMARYL [Concomitant]

REACTIONS (1)
  - CARDIAC FAILURE CONGESTIVE [None]
